FAERS Safety Report 10193456 (Version 1)
Quarter: 2014Q2

REPORT INFORMATION
  Report Type: Spontaneous
  Country: US (occurrence: US)
  Receive Date: 20140524
  Receipt Date: 20140524
  Transmission Date: 20141212
  Serious: No
  Sender: FDA-Public Use
  Company Number: US-SA-2013SA123299

PATIENT
  Age: 70 Year
  Sex: Female

DRUGS (2)
  1. SOLOSTAR [Suspect]
  2. LANTUS SOLOSTAR [Suspect]
     Dosage: TAKEN FROM: 4-5 MONTHS.?DOSE: 18 UNITS AM AND 24 UNITS PM.
     Route: 051

REACTIONS (2)
  - Injection site discolouration [Unknown]
  - Hand fracture [Unknown]
